FAERS Safety Report 20880636 (Version 1)
Quarter: 2022Q2

REPORT INFORMATION
  Report Type: Spontaneous
  Country: CO (occurrence: CO)
  Receive Date: 20220526
  Receipt Date: 20220526
  Transmission Date: 20220721
  Serious: Yes (Hospitalization)
  Sender: FDA-Public Use
  Company Number: CO-BIOMARINAP-CO-2022-143444

PATIENT
  Age: 5 Year
  Sex: Male
  Weight: 14.5 kg

DRUGS (1)
  1. VIMIZIM [Suspect]
     Active Substance: ELOSULFASE ALFA
     Indication: Mucopolysaccharidosis IV
     Dosage: 30 MILLIGRAM, QW
     Route: 042
     Dates: start: 20210820

REACTIONS (3)
  - Tonsillectomy [Unknown]
  - Adenoidectomy [Unknown]
  - Epiglottis reconstruction [Unknown]

NARRATIVE: CASE EVENT DATE: 20220519
